FAERS Safety Report 11174801 (Version 1)
Quarter: 2015Q2

REPORT INFORMATION
  Report Type: Report from Study
  Country: NL (occurrence: NL)
  Receive Date: 20150609
  Receipt Date: 20150609
  Transmission Date: 20150821
  Serious: Yes (Hospitalization, Other)
  Sender: FDA-Public Use
  Company Number: NL-GLAXOSMITHKLINE-NL2015GSK076206

PATIENT
  Age: 80 Year
  Sex: Male

DRUGS (10)
  1. CYCLOPHOSPHAMIDE. [Suspect]
     Active Substance: CYCLOPHOSPHAMIDE
     Indication: MANTLE CELL LYMPHOMA
     Dosage: 400 UNK, UNK
     Dates: start: 20090925, end: 20091031
  2. TOLBUTAMIDE. [Concomitant]
     Active Substance: TOLBUTAMIDE
     Dosage: 500 MG, UNK
     Dates: start: 20050929, end: 20090626
  3. RITUXIMAB [Suspect]
     Active Substance: RITUXIMAB
     Indication: MANTLE CELL LYMPHOMA
     Dosage: UNK
     Dates: start: 20090825, end: 20090910
  4. COTRIMOXAZOLE [Concomitant]
     Active Substance: SULFAMETHOXAZOLE\TRIMETHOPRIM
     Dosage: 480 MG, UNK
     Dates: start: 20090728
  5. AMOXICILLIN SODIUM + POTASSIUM CLAVULANATE [Suspect]
     Active Substance: AMOXICILLIN\CLAVULANATE POTASSIUM
     Indication: MANTLE CELL LYMPHOMA
     Dosage: UNK
     Dates: start: 20090910, end: 20090921
  6. VALACICLOVIR HYDROCHLORIDE [Suspect]
     Active Substance: VALACYCLOVIR HYDROCHLORIDE
     Indication: MANTLE CELL LYMPHOMA
     Dosage: 500 UNK, UNK
     Dates: start: 20091031
  7. COVERSYL [Concomitant]
     Active Substance: PERINDOPRIL
     Dosage: 8 MG, UNK
     Dates: start: 20080318, end: 20090626
  8. RITUXIMAB [Suspect]
     Active Substance: RITUXIMAB
     Dosage: 750 UNK, UNK
     Dates: start: 20090929, end: 20091112
  9. FLUDARABINE [Suspect]
     Active Substance: FLUDARABINE PHOSPHATE
     Indication: MANTLE CELL LYMPHOMA
     Dosage: 45 UNK, UNK
     Dates: start: 20090929, end: 20091031
  10. NEBILET [Concomitant]
     Active Substance: NEBIVOLOL
     Dosage: 7.5 MG, UNK
     Dates: start: 20090616, end: 20090626

REACTIONS (3)
  - Rash [Recovered/Resolved]
  - Pancytopenia [Unknown]
  - Pyrexia [Recovered/Resolved]

NARRATIVE: CASE EVENT DATE: 20090922
